FAERS Safety Report 22039449 (Version 1)
Quarter: 2023Q1

REPORT INFORMATION
  Report Type: Spontaneous
  Country: US (occurrence: None)
  Receive Date: 20230223
  Receipt Date: 20230223
  Transmission Date: 20230418
  Serious: Yes (Death)
  Sender: FDA-Public Use
  Company Number: None

PATIENT
  Age: 72 Year
  Sex: Female

DRUGS (16)
  1. TACROLIMUS [Suspect]
     Active Substance: TACROLIMUS
     Dates: start: 201803, end: 202302
  2. TYLENOL [Concomitant]
     Active Substance: ACETAMINOPHEN
  3. OCUVITE [Concomitant]
     Active Substance: VITAMINS
  4. PREDNISONE [Concomitant]
     Active Substance: PREDNISONE
  5. OMEPRAZOLE [Concomitant]
     Active Substance: OMEPRAZOLE
  6. sulfa-meth/trimeth [Concomitant]
  7. azithromvcin [Concomitant]
  8. MONTELUKAST [Concomitant]
     Active Substance: MONTELUKAST SODIUM
  9. oravastatin [Concomitant]
  10. MAGNESIUM OXIDE [Concomitant]
     Active Substance: MAGNESIUM OXIDE
  11. VITAMINS NOS [Concomitant]
     Active Substance: VITAMINS
  12. ACYCLOVIR [Concomitant]
     Active Substance: ACYCLOVIR
  13. FLUTICASONE [Concomitant]
     Active Substance: FLUTICASONE
  14. HYDRALAZINE [Concomitant]
     Active Substance: HYDRALAZINE HYDROCHLORIDE
  15. ITRACONAZOLE [Concomitant]
     Active Substance: ITRACONAZOLE
  16. calcium/d [Concomitant]

REACTIONS (1)
  - COVID-19 [None]

NARRATIVE: CASE EVENT DATE: 20230201
